FAERS Safety Report 4646112-9 (Version None)
Quarter: 2005Q2

REPORT INFORMATION
  Report Type: 
  Country: None (occurrence: None)
  Receive Date: 20050427
  Receipt Date: 20040429
  Transmission Date: 20051028
  Serious: No
  Sender: FDA-Public Use
  Company Number: US-GLAXOSMITHKLINE-A0508944A

PATIENT
  Age: 67 Year
  Sex: Female

DRUGS (2)
  1. ZOFRAN [Suspect]
     Dosage: 4MG AS REQUIRED
     Route: 048
     Dates: start: 20040416
  2. UNKNOWN MEDICATION [Concomitant]

REACTIONS (1)
  - EYE SWELLING [None]
